FAERS Safety Report 5322540-3 (Version None)
Quarter: 2007Q1

REPORT INFORMATION
  Report Type: 
  Country: None (occurrence: None)
  Receive Date: 20070220
  Receipt Date: 20061227
  Transmission Date: 20070707
  Serious: No
  Sender: FDA-Public Use
  Company Number: TPA2007A00039

PATIENT
  Age: 64 Year
  Sex: Female
  Weight: 58.0604 kg

DRUGS (4)
  1. ROZEREM [Suspect]
     Indication: INSOMNIA
     Dosage: 8 MG, HS, PER ORAL
     Route: 048
     Dates: start: 20061220
  2. LIPITOR [Concomitant]
  3. CALCIUM (CALICUM) [Concomitant]
  4. ASPIRIN [Concomitant]

REACTIONS (1)
  - MIDDLE INSOMNIA [None]
